FAERS Safety Report 13802427 (Version 1)
Quarter: 2017Q3

REPORT INFORMATION
  Report Type: Spontaneous
  Country: CN (occurrence: CN)
  Receive Date: 20170728
  Receipt Date: 20170728
  Transmission Date: 20171127
  Serious: Yes (Other)
  Sender: FDA-Public Use
  Company Number: CN-009507513-1608CHN004361

PATIENT
  Sex: Female

DRUGS (1)
  1. MARVELON [Suspect]
     Active Substance: DESOGESTREL\ETHINYL ESTRADIOL
     Indication: MENSTRUAL DISORDER
     Dosage: UNK
     Route: 048

REACTIONS (4)
  - Caesarean section [Unknown]
  - Metrorrhagia [Unknown]
  - Off label use [Unknown]
  - Maternal exposure before pregnancy [Unknown]
